FAERS Safety Report 21962102 (Version 1)
Quarter: 2023Q1

REPORT INFORMATION
  Report Type: Report from Study
  Country: US (occurrence: US)
  Receive Date: 20230207
  Receipt Date: 20230207
  Transmission Date: 20230418
  Serious: Yes (Other)
  Sender: FDA-Public Use
  Company Number: US-ORG100014127-2022001267

PATIENT
  Age: 32 Year
  Sex: Female

DRUGS (2)
  1. LYSODREN [Suspect]
     Active Substance: MITOTANE
     Indication: Adrenal gland cancer
     Dosage: 01 TABLET BID
     Route: 048
     Dates: start: 20221011
  2. LYSODREN [Suspect]
     Active Substance: MITOTANE
     Indication: Adrenal gland cancer
     Dosage: 01 TABLET IN THE MORNING AND 02 TABLETS IN THE EVENING
     Dates: end: 202301

REACTIONS (2)
  - Hypothyroidism [Not Recovered/Not Resolved]
  - Drug ineffective [Unknown]
